FAERS Safety Report 8227729-1 (Version None)
Quarter: 2012Q1

REPORT INFORMATION
  Report Type: 
  Country: None (occurrence: None)
  Receive Date: 20120322
  Receipt Date: 20120316
  Transmission Date: 20120608
  Serious: Yes (Death, Hospitalization)
  Sender: FDA-Public Use
  Company Number: DE-PFIZER INC-2011298204

PATIENT
  Age: 69 Year
  Sex: Male
  Weight: 81 kg

DRUGS (4)
  1. TAGAMET [Concomitant]
     Indication: PREMEDICATION
     Dosage: 400 MG, PRIOR TO TEMSIROLIMUS ADMINISTRATION
  2. PREDNISOLONE [Concomitant]
     Indication: PREMEDICATION
     Dosage: 100 MG PRIOR TO TEMSIROLIMUS ADMINISTRATION
  3. TEMSIROLIMUS [Suspect]
     Indication: RENAL CELL CARCINOMA
     Dosage: 25 MG, WEEKLY
     Dates: start: 20111018, end: 20111128
  4. CLEMASTINE FUMARATE [Concomitant]
     Indication: PREMEDICATION
     Dosage: 2 MG PRIOR TO TEMSIROLIMUS ADMINISTRATION

REACTIONS (1)
  - LUNG INFECTION [None]
